FAERS Safety Report 7579156-8 (Version None)
Quarter: 2011Q2

REPORT INFORMATION
  Report Type: 
  Country: None (occurrence: None)
  Receive Date: 20110628
  Receipt Date: 20110621
  Transmission Date: 20111010
  Serious: No
  Sender: FDA-Public Use
  Company Number: US-B.I. PHARMACEUTICALS,INC./RIDGEFIELD-2011-BP-15982BP

PATIENT
  Age: 53 Year
  Sex: Female

DRUGS (1)
  1. MICARDIS HCT [Suspect]

REACTIONS (1)
  - NERVE INJURY [None]
